FAERS Safety Report 9969859 (Version 1)
Quarter: 2014Q1

REPORT INFORMATION
  Report Type: Spontaneous
  Country: KR (occurrence: None)
  Receive Date: 20140304
  Receipt Date: 20140304
  Transmission Date: 20141002
  Serious: Yes (Hospitalization)
  Sender: FDA-Public Use
  Company Number: NL01PV14.35385

PATIENT
  Age: 57 Year
  Sex: Female
  Weight: 72 kg

DRUGS (6)
  1. UNKNOWN (ZOLPIDEM) TABLET [Suspect]
     Indication: INSOMNIA
     Dosage: 10 MG IN THE IMMEDIATE-RELEASE FORMULATION AT BEDTIME
  2. PROPYLTHIOURACIL (PROPYLTHIOURACIL) [Concomitant]
  3. DIAZEPAM (DIAZEPAM) [Concomitant]
  4. QUETIAPINE (QUETIAPINE) [Concomitant]
  5. LORAZEPAM (LORAZEPAM) [Concomitant]
  6. UNKNOWN (ESCITALOPRAM) [Concomitant]

REACTIONS (6)
  - Eating disorder [None]
  - Obsessive-compulsive disorder [None]
  - Dysarthria [None]
  - Anger [None]
  - Irritability [None]
  - Fatigue [None]
